FAERS Safety Report 21835037 (Version 8)
Quarter: 2024Q2

REPORT INFORMATION
  Report Type: Report from Study
  Country: US (occurrence: US)
  Receive Date: 20230109
  Receipt Date: 20240528
  Transmission Date: 20240716
  Serious: Yes (Hospitalization, Other)
  Sender: FDA-Public Use
  Company Number: US-TAKEDA-US201813864

PATIENT
  Age: 9 Year
  Sex: Male
  Weight: 62 kg

DRUGS (14)
  1. IDURSULFASE [Suspect]
     Active Substance: IDURSULFASE
     Indication: Mucopolysaccharidosis II
     Dosage: 15 INTERNATIONAL UNIT, 1/WEEK
     Route: 042
     Dates: start: 20180329
  2. IDURSULFASE [Suspect]
     Active Substance: IDURSULFASE
     Dosage: UNK UNK, 1/WEEK
     Route: 042
     Dates: start: 20180405
  3. IDURSULFASE [Suspect]
     Active Substance: IDURSULFASE
     Dosage: 15 INTERNATIONAL UNIT, 1/WEEK
     Route: 042
     Dates: start: 20230424
  4. IDURSULFASE [Suspect]
     Active Substance: IDURSULFASE
     Dosage: 30 MILLIGRAM
     Route: 065
  5. IDURSULFASE [Suspect]
     Active Substance: IDURSULFASE
     Dosage: 15 INTERNATIONAL UNIT, 1/WEEK
     Route: 042
     Dates: start: 20230606
  6. IDURSULFASE [Suspect]
     Active Substance: IDURSULFASE
     Dosage: 15 INTERNATIONAL UNIT, 1/WEEK
     Route: 042
  7. COVID-19 VACCINE NOS [Suspect]
     Active Substance: COVID-19 VACCINE
     Indication: COVID-19 immunisation
     Dosage: UNK
     Route: 065
     Dates: start: 20211231
  8. LISINOPRIL [Concomitant]
     Active Substance: LISINOPRIL
  9. Citirizine [Concomitant]
  10. DEPAKOTE [Concomitant]
     Active Substance: DIVALPROEX SODIUM
  11. OXCARBAZEPINE [Concomitant]
     Active Substance: OXCARBAZEPINE
  12. MELATONIN [Concomitant]
     Active Substance: MELATONIN
  13. VITAMIN D [Concomitant]
     Active Substance: VITAMIN D NOS
  14. FLONASE [Concomitant]
     Active Substance: FLUTICASONE PROPIONATE

REACTIONS (7)
  - Vascular device infection [Unknown]
  - Device dislocation [Unknown]
  - Infection [Unknown]
  - Pyrexia [Recovered/Resolved]
  - Seizure [Recovering/Resolving]
  - Weight increased [Unknown]
  - Inappropriate schedule of product administration [Recovered/Resolved]

NARRATIVE: CASE EVENT DATE: 20180407
